FAERS Safety Report 6963433-5 (Version None)
Quarter: 2010Q3

REPORT INFORMATION
  Report Type: 
  Country: None (occurrence: None)
  Receive Date: 20100902
  Receipt Date: 20100827
  Transmission Date: 20110219
  Serious: Yes (Hospitalization)
  Sender: FDA-Public Use
  Company Number: B0656542A

PATIENT
  Sex: Male

DRUGS (3)
  1. ROPINIROLE [Suspect]
     Indication: PARKINSON'S DISEASE
     Route: 048
     Dates: start: 20090725, end: 20100609
  2. PLACEBO [Suspect]
     Indication: PARKINSON'S DISEASE
     Route: 048
     Dates: start: 20090725, end: 20100609
  3. GLYBURIDE [Suspect]
     Indication: DIABETES MELLITUS
     Dosage: 2.5MG PER DAY
     Route: 048
     Dates: start: 20100321, end: 20100519

REACTIONS (4)
  - ABNORMAL BEHAVIOUR [None]
  - ALTERED STATE OF CONSCIOUSNESS [None]
  - HYPOGLYCAEMIA [None]
  - RENAL FAILURE CHRONIC [None]
